FAERS Safety Report 10947852 (Version 2)
Quarter: 2015Q2

REPORT INFORMATION
  Report Type: Report from Study
  Country: DE (occurrence: DE)
  Receive Date: 20150324
  Receipt Date: 20150512
  Transmission Date: 20150821
  Serious: Yes (Death)
  Sender: FDA-Public Use
  Company Number: DE-BEH-2015049690

PATIENT
  Age: 59 Year
  Sex: Male
  Weight: 60 kg

DRUGS (9)
  1. PRIVIGEN [Suspect]
     Active Substance: HUMAN IMMUNOGLOBULIN G
     Dosage: INFUSION SPEED: MIN. 1.2 ML/MIN, MAX. 1.7 ML/MIN
     Dates: start: 20131105, end: 20131105
  2. PRIVIGEN [Suspect]
     Active Substance: HUMAN IMMUNOGLOBULIN G
     Indication: INFECTION
     Dosage: INFUSION SPEED: MIN. 1.2 ML/MIN, MAX. 1.7 ML/MIN
     Dates: start: 20130718, end: 20130718
  3. PRIVIGEN [Suspect]
     Active Substance: HUMAN IMMUNOGLOBULIN G
     Dosage: INFUSION SPEED: MIN. 1.2 ML/MIN, MAX. 1.7 ML/MIN
     Dates: start: 20131008, end: 20131008
  4. ACC AKUT [Concomitant]
     Active Substance: ACETYLCYSTEINE
  5. PRIVIGEN [Suspect]
     Active Substance: HUMAN IMMUNOGLOBULIN G
     Dosage: INFUSION SPEED: MIN. 1.2 ML/MIN, MAX. 1.7 ML/MIN
     Dates: start: 20130910, end: 20130910
  6. PRIVIGEN [Suspect]
     Active Substance: HUMAN IMMUNOGLOBULIN G
     Indication: SECONDARY IMMUNODEFICIENCY
     Dosage: INFUSION SPEED: MIN. 1.2 ML/MIN, MAX. 1.7 ML/MIN
     Dates: start: 20131209, end: 20131209
  7. AMLODIPIN [Concomitant]
     Active Substance: AMLODIPINE BESYLATE
  8. PRIVIGEN [Suspect]
     Active Substance: HUMAN IMMUNOGLOBULIN G
     Indication: PLASMA CELL MYELOMA
     Dosage: INFUSION SPEED: MIN. 1.2 ML/MIN, MAX. 1.7 ML/MIN
     Dates: start: 20130625, end: 20130625
  9. ZOMETA [Concomitant]
     Active Substance: ZOLEDRONIC ACID

REACTIONS (2)
  - Colitis ischaemic [Fatal]
  - Circulatory collapse [Fatal]
